FAERS Safety Report 12929122 (Version 1)
Quarter: 2016Q4

REPORT INFORMATION
  Report Type: Spontaneous
  Country: PT (occurrence: PT)
  Receive Date: 20161110
  Receipt Date: 20161110
  Transmission Date: 20170207
  Serious: Yes (Life-Threatening, Hospitalization, Other)
  Sender: FDA-Public Use
  Company Number: PT-PFIZER INC-2016520788

PATIENT
  Age: 68 Year
  Sex: Male

DRUGS (1)
  1. LEDERTREXATO [Suspect]
     Active Substance: METHOTREXATE SODIUM
     Indication: RHEUMATOID ARTHRITIS
     Dosage: 1 DF, UNK
     Route: 065
     Dates: start: 20130712

REACTIONS (1)
  - Meningitis listeria [Unknown]

NARRATIVE: CASE EVENT DATE: 201605
